FAERS Safety Report 4633158-X (Version None)
Quarter: 2005Q2

REPORT INFORMATION
  Report Type: 
  Country: None (occurrence: None)
  Receive Date: 20050412
  Receipt Date: 20050331
  Transmission Date: 20051028
  Serious: Yes (Other)
  Sender: FDA-Public Use
  Company Number: PHBS2005CA04679

PATIENT
  Sex: Female

DRUGS (4)
  1. COMBIPATCH [Suspect]
     Indication: HORMONE REPLACEMENT THERAPY
     Dosage: 50 ESTR - 140 NORE UG/DAY
     Route: 062
  2. ESTRADOT [Suspect]
     Indication: HORMONE REPLACEMENT THERAPY
     Dosage: 37.5 UG/DAY
     Route: 062
  3. ESTRADIOL [Concomitant]
     Indication: HORMONE REPLACEMENT THERAPY
  4. MEDROXYPROGESTERONE [Concomitant]
     Indication: HORMONE REPLACEMENT THERAPY

REACTIONS (2)
  - INCONTINENCE [None]
  - VAGINAL ODOUR [None]
